FAERS Safety Report 11335449 (Version 1)
Quarter: 2015Q3

REPORT INFORMATION
  Report Type: Spontaneous
  Country: US (occurrence: None)
  Receive Date: 20150731
  Receipt Date: 20150731
  Transmission Date: 20151125
  Serious: Yes (Life-Threatening, Hospitalization, Other)
  Sender: FDA-Public Use
  Company Number: None

PATIENT
  Age: 31 Year
  Sex: Male
  Weight: 116 kg

DRUGS (1)
  1. METRONIDAZOLE. [Suspect]
     Active Substance: METRONIDAZOLE
     Indication: INFECTION PROTOZOAL
     Route: 048
     Dates: start: 20150709

REACTIONS (3)
  - Fear [None]
  - Seizure [None]
  - Feeling abnormal [None]

NARRATIVE: CASE EVENT DATE: 20150719
